FAERS Safety Report 9737084 (Version 1)
Quarter: 2013Q4

REPORT INFORMATION
  Report Type: Spontaneous
  Country: US (occurrence: US)
  Receive Date: 20131206
  Receipt Date: 20131206
  Transmission Date: 20140711
  Serious: Yes (Other)
  Sender: FDA-Public Use
  Company Number: US-PFIZER INC-2013343713

PATIENT
  Age: 9 Year
  Sex: Male
  Weight: 95.2 kg

DRUGS (1)
  1. ROBITUSSIN DX [Suspect]
     Dosage: UNK, THREE BOTTLES IN A DAY
     Route: 048
     Dates: start: 2000

REACTIONS (11)
  - Overdose [Unknown]
  - Drug dependence [Unknown]
  - Incorrect dose administered [Unknown]
  - Accidental exposure to product by child [Unknown]
  - Drug administration error [Unknown]
  - Euphoric mood [Unknown]
  - Nervous system disorder [Unknown]
  - Confusional state [Unknown]
  - Thinking abnormal [Unknown]
  - Fall [Unknown]
  - Somnolence [Unknown]
